FAERS Safety Report 8447755-7 (Version None)
Quarter: 2012Q2

REPORT INFORMATION
  Report Type: 
  Country: None (occurrence: None)
  Receive Date: 20120619
  Receipt Date: 20120605
  Transmission Date: 20120825
  Serious: Yes (Other)
  Sender: FDA-Public Use
  Company Number: US-BAYER-2012-056030

PATIENT
  Age: 73 Year
  Sex: Female

DRUGS (13)
  1. PRAVASTATIN [Suspect]
  2. FOLIC ACID [Suspect]
  3. ASPIRIN [Suspect]
     Dosage: 80 MG, UNK
  4. CALCIUM CARBONATE [Suspect]
  5. VITAMIN D [Suspect]
  6. HYDROXYUREA [Suspect]
  7. CETIRIZINE HYDROCHLORIDE [Suspect]
  8. EPOGEN [Suspect]
  9. FUROSEMIDE [Suspect]
  10. IRON [Suspect]
  11. ANAGRELIDE HCL [Suspect]
  12. VITAMIN B COMPLEX CAP [Suspect]
  13. SODIUM BICARBONATE [Suspect]

REACTIONS (9)
  - THROMBOCYTOSIS [None]
  - GASTROINTESTINAL OBSTRUCTION [None]
  - LARGE INTESTINAL ULCER [None]
  - GASTROINTESTINAL PERFORATION [None]
  - GASTROINTESTINAL ULCER [None]
  - ERYTHROPENIA [None]
  - ANAEMIA [None]
  - GASTROINTESTINAL HAEMORRHAGE [None]
  - PANCYTOPENIA [None]
